FAERS Safety Report 13107761 (Version 1)
Quarter: 2017Q1

REPORT INFORMATION
  Report Type: Spontaneous
  Country: FR (occurrence: FR)
  Receive Date: 20170112
  Receipt Date: 20170112
  Transmission Date: 20170428
  Serious: Yes (Death, Hospitalization)
  Sender: FDA-Public Use
  Company Number: FR-CIPLA LTD.-2017FR00429

PATIENT

DRUGS (5)
  1. CLONAZEPAM. [Suspect]
     Active Substance: CLONAZEPAM
     Dosage: 1 MG, UNK
     Route: 065
  2. MIDAZOLAM [Suspect]
     Active Substance: MIDAZOLAM HYDROCHLORIDE
     Dosage: UNK, CONTINUOUS
     Route: 042
  3. LEVETIRACETAM. [Suspect]
     Active Substance: LEVETIRACETAM
     Indication: STATUS EPILEPTICUS
     Dosage: 750 MG, PER 12 HOUR
     Route: 065
  4. MORPHINE [Suspect]
     Active Substance: MORPHINE
     Dosage: UNK, CONTINOUS (44 HOURS)
     Route: 042
  5. CISATRACURIUM. [Suspect]
     Active Substance: CISATRACURIUM
     Indication: HYPOTHERMIA
     Dosage: UNK, CONTINUOUS (6 HOURS)
     Route: 042

REACTIONS (7)
  - Acute kidney injury [Unknown]
  - Cardiogenic shock [Unknown]
  - Electroencephalogram abnormal [Unknown]
  - Drug level increased [Recovered/Resolved]
  - Coma [Unknown]
  - Overdose [Unknown]
  - Death [Fatal]
